FAERS Safety Report 5497904-8 (Version None)
Quarter: 2007Q4

REPORT INFORMATION
  Report Type: 
  Country: None (occurrence: None)
  Receive Date: 20071025
  Receipt Date: 20071015
  Transmission Date: 20080405
  Serious: Yes (Other)
  Sender: FDA-Public Use
  Company Number: CA-ELI_LILLY_AND_COMPANY-CA200710004303

PATIENT
  Age: 51 Year
  Sex: Female
  Weight: 49.886 kg

DRUGS (5)
  1. FORTEO [Suspect]
     Indication: OSTEOPOROSIS
     Dosage: 20 UG, DAILY (1/D)
     Route: 058
     Dates: start: 20070730, end: 20071010
  2. SULFASALAZINE [Concomitant]
  3. GABAPENTIN [Concomitant]
  4. NALFON [Concomitant]
  5. VITAMIN D [Concomitant]

REACTIONS (4)
  - GAIT DISTURBANCE [None]
  - HYPOAESTHESIA [None]
  - LYMPHOMA [None]
  - PAIN IN EXTREMITY [None]
